FAERS Safety Report 10556933 (Version 2)
Quarter: 2014Q4

REPORT INFORMATION
  Report Type: Spontaneous
  Country: US (occurrence: None)
  Receive Date: 20141029
  Receipt Date: 20141105
  Transmission Date: 20150529
  Serious: Yes (Other)
  Sender: FDA-Public Use
  Company Number: 20140670

PATIENT
  Age: 33 Year
  Sex: Male

DRUGS (1)
  1. EPINEPHRINE INJECTION, USP (1071-25) 1 MG/ML [Suspect]
     Active Substance: EPINEPHRINE
     Indication: RHINOPLASTY

REACTIONS (5)
  - Visual field defect [None]
  - Retinopathy [None]
  - Visual acuity reduced [None]
  - Vision blurred [None]
  - Retinal haemorrhage [None]
